FAERS Safety Report 10086919 (Version 2)
Quarter: 2014Q2

REPORT INFORMATION
  Report Type: Report from Study
  Country: GR (occurrence: GR)
  Receive Date: 20140418
  Receipt Date: 20140418
  Transmission Date: 20141212
  Serious: Yes (Life-Threatening, Other)
  Sender: FDA-Public Use
  Company Number: PHHO2014GR001108

PATIENT
  Sex: 0

DRUGS (11)
  1. SOM230 [Suspect]
     Indication: PITUITARY-DEPENDENT CUSHING^S SYNDROME
     Dosage: 600 UG, BID
     Route: 058
     Dates: start: 20130312, end: 20140107
  2. SOM230 [Suspect]
     Dosage: 600 UG, BID
     Route: 058
     Dates: start: 20140116, end: 20140117
  3. LANTUS [Concomitant]
     Indication: DIABETES MELLITUS
     Dosage: 38 U, QD (ONCE DAY)
     Dates: start: 20130320, end: 20140207
  4. LANTUS [Concomitant]
     Dosage: UNK
     Dates: start: 20040130
  5. NOVORAPID [Concomitant]
     Indication: DIABETES MELLITUS
     Dosage: 20 U, TID (X3) (60 UNITS)
     Dates: start: 20130402
  6. EUCREAS [Concomitant]
     Indication: DIABETES MELLITUS
     Dosage: 1 DF, BID (1TB X2)
     Dates: start: 201204
  7. FUROSEMIDE [Concomitant]
     Indication: HYPERTENSION
     Dosage: 40 MG, UNK
  8. INEGY [Concomitant]
     Indication: DYSLIPIDAEMIA
     Dosage: 1 DF, (10/40 MG)
  9. GLUCOPHAGE [Concomitant]
     Dosage: 850 MG, BID
     Route: 048
     Dates: start: 20140214, end: 20140228
  10. MICARDIS PLUS [Concomitant]
     Indication: HYPERTENSION
     Dosage: 1 DF, UNK(80/12.5 MG)
  11. L THYROXINE [Concomitant]
     Indication: HYPOTHYROIDISM
     Dosage: 0.88 MG, UNK

REACTIONS (2)
  - Dyspnoea [Recovered/Resolved]
  - Hyperglycaemia [Recovering/Resolving]
